FAERS Safety Report 11685093 (Version 2)
Quarter: 2016Q1

REPORT INFORMATION
  Report Type: Spontaneous
  Country: US (occurrence: US)
  Receive Date: 20151030
  Receipt Date: 20160115
  Transmission Date: 20160525
  Serious: Yes (Other)
  Sender: FDA-Public Use
  Company Number: US-009507513-1510USA013331

PATIENT
  Sex: Female

DRUGS (6)
  1. JANUVIA [Suspect]
     Active Substance: SITAGLIPTIN PHOSPHATE
     Route: 048
  2. METFORMIN [Concomitant]
     Active Substance: METFORMIN HYDROCHLORIDE
  3. NOVOLOG [Concomitant]
     Active Substance: INSULIN ASPART
  4. LEVOTHYROXINE SODIUM. [Concomitant]
     Active Substance: LEVOTHYROXINE SODIUM
  5. PREDNISONE. [Suspect]
     Active Substance: PREDNISONE
     Route: 048
  6. LISINOPRIL. [Concomitant]
     Active Substance: LISINOPRIL
     Route: 048

REACTIONS (6)
  - Lung neoplasm malignant [Unknown]
  - Cardiac disorder [Unknown]
  - Blood glucose increased [Unknown]
  - Pain [Unknown]
  - Eye infection [Unknown]
  - Infection [Unknown]

NARRATIVE: CASE EVENT DATE: 2014
